FAERS Safety Report 23289752 (Version 3)
Quarter: 2024Q1

REPORT INFORMATION
  Report Type: Spontaneous
  Country: BR (occurrence: BR)
  Receive Date: 20231212
  Receipt Date: 20240301
  Transmission Date: 20240409
  Serious: Yes (Hospitalization, Other)
  Sender: FDA-Public Use
  Company Number: BR-Y-MABS THERAPEUTICS, INC.-EAP2023-BR-001442

PATIENT

DRUGS (3)
  1. DANYELZA [Suspect]
     Active Substance: NAXITAMAB-GQGK
     Indication: Neuroblastoma
     Dosage: CYCLE 1, DOSE 1
     Route: 042
     Dates: start: 20231120, end: 20231120
  2. DANYELZA [Suspect]
     Active Substance: NAXITAMAB-GQGK
     Dosage: CYCLE 1, DOSE 2
     Route: 042
     Dates: start: 20231122, end: 20231122
  3. DANYELZA [Suspect]
     Active Substance: NAXITAMAB-GQGK
     Dosage: CYCLE 1, DOSE 3
     Route: 042
     Dates: start: 20231124, end: 20231124

REACTIONS (11)
  - Posterior reversible encephalopathy syndrome [Recovered/Resolved]
  - Hypoxia [Recovered/Resolved]
  - Depressed level of consciousness [Unknown]
  - Central nervous system lesion [Unknown]
  - Hallucination [Recovered/Resolved]
  - Rash [Recovered/Resolved]
  - Vomiting [Recovered/Resolved]
  - Pain [Unknown]
  - Bronchospasm [Recovered/Resolved]
  - Disease progression [Unknown]
  - Neuroblastoma [Unknown]

NARRATIVE: CASE EVENT DATE: 20231120
